FAERS Safety Report 13772456 (Version 4)
Quarter: 2017Q4

REPORT INFORMATION
  Report Type: Spontaneous
  Country: US (occurrence: US)
  Receive Date: 20170720
  Receipt Date: 20171113
  Transmission Date: 20180320
  Serious: Yes (Hospitalization)
  Sender: FDA-Public Use
  Company Number: US-PIRAMAL CRITICAL CARE LIMITED-2017-PEL-000797

PATIENT

DRUGS (3)
  1. GABLOFEN [Suspect]
     Active Substance: BACLOFEN
     Dosage: 87% DOSE REDUCED, QD
     Route: 037
  2. GABLOFEN [Suspect]
     Active Substance: BACLOFEN
     Indication: MUSCLE SPASTICITY
     Dosage: 300 ?G, QD
     Route: 037
  3. GABLOFEN [Suspect]
     Active Substance: BACLOFEN
     Indication: CEREBRAL PALSY
     Dosage: 200 ?G, QD
     Route: 037

REACTIONS (5)
  - Overdose [Unknown]
  - Device malfunction [Recovered/Resolved]
  - Hypercapnia [Unknown]
  - Atelectasis [Unknown]
  - Acidosis [Unknown]

NARRATIVE: CASE EVENT DATE: 20170511
